FAERS Safety Report 7375883-6 (Version None)
Quarter: 2011Q1

REPORT INFORMATION
  Report Type: 
  Country: None (occurrence: None)
  Receive Date: 20110325
  Receipt Date: 20110324
  Transmission Date: 20110831
  Serious: Yes (Life-Threatening, Hospitalization)
  Sender: FDA-Public Use
  Company Number: A0919857A

PATIENT
  Age: 62 Year
  Sex: Male

DRUGS (1)
  1. PAZOPANIB [Suspect]
     Dosage: 800MG TWICE PER DAY
     Route: 048
     Dates: start: 20110121, end: 20110309

REACTIONS (1)
  - PULMONARY EMBOLISM [None]
